FAERS Safety Report 10063270 (Version 2)
Quarter: 2014Q2

REPORT INFORMATION
  Report Type: Spontaneous
  Country: NO (occurrence: NO)
  Receive Date: 20140407
  Receipt Date: 20140407
  Transmission Date: 20141212
  Serious: Yes (Hospitalization, Other)
  Sender: FDA-Public Use
  Company Number: NO-ELI_LILLY_AND_COMPANY-NO201403009105

PATIENT
  Age: 57 Year
  Sex: Male

DRUGS (4)
  1. ALIMTA [Suspect]
     Indication: NON-SMALL CELL LUNG CANCER
     Dosage: 850 G, UNKNOWN
     Dates: start: 20140312
  2. VITAMIN B12                        /00056201/ [Concomitant]
  3. FOLIC ACID [Concomitant]
  4. IBUX [Concomitant]
     Dosage: 40 MG, EVERY 3 HRS

REACTIONS (2)
  - Abdominal pain upper [Unknown]
  - Gastrointestinal toxicity [Unknown]
